FAERS Safety Report 15738019 (Version 1)
Quarter: 2018Q4

REPORT INFORMATION
  Report Type: Spontaneous
  Country: MX (occurrence: MX)
  Receive Date: 20181219
  Receipt Date: 20181219
  Transmission Date: 20190205
  Serious: Yes (Hospitalization, Other)
  Sender: FDA-Public Use
  Company Number: MX-TEVA-2018-MX-988595

PATIENT
  Age: 52 Year
  Sex: Male

DRUGS (7)
  1. CLINDAMYCIN. [Concomitant]
     Active Substance: CLINDAMYCIN
     Indication: NECROTISING FASCIITIS
     Route: 042
  2. CLINDAMYCIN. [Concomitant]
     Active Substance: CLINDAMYCIN
     Indication: SOFT TISSUE INFECTION
  3. IMIPENEM [Concomitant]
     Active Substance: IMIPENEM
     Indication: NECROTISING FASCIITIS
     Route: 042
  4. IMIPENEM [Concomitant]
     Active Substance: IMIPENEM
     Indication: SOFT TISSUE INFECTION
  5. NOREPINEPHRINE. [Suspect]
     Active Substance: NOREPINEPHRINE
     Indication: SEPTIC SHOCK
     Dosage: DILUTED IN 0.9% 1000CC PHYSIOLOGICAL SOLUTION PASSING AT A RATE OF 8 ML/HOUR; LATER BOOSTED TWICE...
     Route: 041
  6. PROPRANOLOL [Concomitant]
     Active Substance: PROPRANOLOL HYDROCHLORIDE
     Indication: VARICES OESOPHAGEAL
  7. PROPRANOLOL [Concomitant]
     Active Substance: PROPRANOLOL HYDROCHLORIDE
     Indication: ESSENTIAL HYPERTENSION
     Route: 065

REACTIONS (2)
  - Cardio-respiratory arrest [Unknown]
  - Drug ineffective [Unknown]
